FAERS Safety Report 8934300 (Version 1)
Quarter: 2012Q4

REPORT INFORMATION
  Report Type: 
  Country: US (occurrence: US)
  Receive Date: 20121129
  Receipt Date: 20121129
  Transmission Date: 20130627
  Serious: No
  Sender: FDA-Public Use
  Company Number: US-PFIZER INC-2012298050

PATIENT
  Sex: Female

DRUGS (5)
  1. LYRICA [Suspect]
     Dosage: 25 mg, 2x/day
  2. LYRICA [Suspect]
     Dosage: 50 mg, 2x/day
  3. LYRICA [Suspect]
     Dosage: 75 mg, 2x/day
  4. LYRICA [Suspect]
     Dosage: 25mg, 1x/day, for a week
  5. LYRICA [Suspect]
     Dosage: 12.5 mg, 1x/day (1/2 a dose for another week)

REACTIONS (7)
  - Weight increased [Unknown]
  - Migraine [Unknown]
  - Panic attack [Unknown]
  - Photophobia [Unknown]
  - Headache [Unknown]
  - Nausea [Unknown]
  - Neck pain [Unknown]
